FAERS Safety Report 12521833 (Version 2)
Quarter: 2016Q3

REPORT INFORMATION
  Report Type: Spontaneous
  Country: GB (occurrence: GB)
  Receive Date: 20160701
  Receipt Date: 20160913
  Transmission Date: 20161109
  Serious: No
  Sender: FDA-Public Use
  Company Number: GB-PURDUE PHARMA-GBR-2016-0037426

PATIENT
  Age: 26 Year
  Sex: Female

DRUGS (5)
  1. TARGINACT [Suspect]
     Active Substance: NALOXONE HYDROCHLORIDE\OXYCODONE HYDROCHLORIDE
     Dosage: 10/5 MG, Q12H
     Route: 065
     Dates: start: 201206
  2. TARGINACT [Suspect]
     Active Substance: NALOXONE HYDROCHLORIDE\OXYCODONE HYDROCHLORIDE
     Dosage: 5/2.5 MG, Q12H
     Route: 065
     Dates: start: 201206
  3. IRON [Concomitant]
     Active Substance: IRON
     Indication: ANAEMIA
  4. TARGINACT [Suspect]
     Active Substance: NALOXONE HYDROCHLORIDE\OXYCODONE HYDROCHLORIDE
     Dosage: 5/2.5 MG, Q12H
     Route: 065
     Dates: start: 201606
  5. TARGINACT [Suspect]
     Active Substance: NALOXONE HYDROCHLORIDE\OXYCODONE HYDROCHLORIDE
     Indication: ENDOMETRIOSIS
     Dosage: 10/5 MG, Q12H
     Route: 065
     Dates: start: 201606

REACTIONS (2)
  - Drug effect decreased [Unknown]
  - Medication residue present [Unknown]

NARRATIVE: CASE EVENT DATE: 201606
